FAERS Safety Report 14231211 (Version 1)
Quarter: 2017Q4

REPORT INFORMATION
  Report Type: Spontaneous
  Country: US (occurrence: US)
  Receive Date: 20171128
  Receipt Date: 20171128
  Transmission Date: 20180321
  Serious: No
  Sender: FDA-Public Use
  Company Number: US-JNJFOC-20171030706

PATIENT
  Sex: Female

DRUGS (2)
  1. WOMENS ROGAINE [Suspect]
     Active Substance: MINOXIDIL
     Indication: PRODUCT USED FOR UNKNOWN INDICATION
     Dosage: TWO SPRAYS
     Route: 061
  2. WOMENS ROGAINE [Suspect]
     Active Substance: MINOXIDIL
     Route: 061

REACTIONS (7)
  - Wrong technique in product usage process [Unknown]
  - Off label use [Unknown]
  - Product container issue [Unknown]
  - Product use in unapproved indication [Unknown]
  - Product storage error [Unknown]
  - Product formulation issue [Unknown]
  - Incorrect dose administered [Unknown]
